FAERS Safety Report 7593735-3 (Version None)
Quarter: 2011Q3

REPORT INFORMATION
  Report Type: 
  Country: None (occurrence: None)
  Receive Date: 20110706
  Receipt Date: 20110623
  Transmission Date: 20111222
  Serious: Yes (Hospitalization)
  Sender: FDA-Public Use
  Company Number: JP-UCBSA-014653

PATIENT
  Sex: Female

DRUGS (32)
  1. SOFALCONE [Concomitant]
     Dates: start: 20100415
  2. CARBAMAZEPINE [Concomitant]
     Dates: start: 20070201
  3. ETIZOLAM [Concomitant]
     Dates: start: 20070201
  4. MILNACIPRAN HYDROCHLORIDE [Concomitant]
     Dates: start: 20061221
  5. MELOXICAM [Concomitant]
     Dates: start: 20080806
  6. LANSOPRAZOLE [Concomitant]
     Dates: start: 20070129
  7. CERTOLIZUMAB PEGOL [Suspect]
     Indication: RHEUMATOID ARTHRITIS
     Dosage: C870-041
     Route: 058
     Dates: start: 20090416, end: 20090101
  8. CERTOLIZUMAB PEGOL [Suspect]
     Route: 058
     Dates: start: 20091029
  9. KETOPROFEN [Concomitant]
     Dosage: QS
     Dates: start: 20080806
  10. KETOPROFEN [Concomitant]
     Dosage: QS
     Dates: start: 20090423
  11. BERAPROST SODIUM [Concomitant]
     Dates: start: 20080213
  12. FOLIC ACID [Concomitant]
     Dates: start: 20081224
  13. TRIAZOLAM [Concomitant]
     Dates: start: 20070221
  14. MECOBALAMIN [Concomitant]
     Dates: start: 20060614
  15. METHOTREXATE [Concomitant]
     Dosage: 8 MG WEEKLY IN THREE DIVIDED DOSES
     Dates: start: 20100705
  16. QUAZEPAM [Concomitant]
     Dates: start: 20110224
  17. SERTRALINE HYDROCHLORIDE [Concomitant]
     Dates: start: 20071121
  18. SENNOSIDE [Concomitant]
     Dates: start: 20100527
  19. ETIZOLAM [Concomitant]
     Dates: start: 20110224
  20. AN EXTRACT OBTAINED FROM INFLAMMATORY RABBIT SKIN INOCULA [Concomitant]
     Dosage: 3 TABLETS DAILY
     Dates: start: 20080806
  21. FERROUS SULFATE TAB [Concomitant]
     Dates: start: 20090820
  22. LITHIUM CARBONATE [Concomitant]
     Dates: start: 20110224
  23. KETOPROFEN [Concomitant]
     Dosage: QS
     Dates: start: 20090325
  24. ZOLPIDEM TARTRATE [Concomitant]
     Dates: start: 20110224
  25. BERAPROST SODIUM [Concomitant]
     Dates: start: 20100705
  26. FOLIC ACID [Concomitant]
     Dates: start: 20100705
  27. ATORVASTATIN CALCIUM [Concomitant]
     Dates: start: 20060406
  28. CERTOLIZUMAB PEGOL [Suspect]
     Dosage: C870-041
     Route: 058
     Dates: start: 20090101, end: 20091015
  29. SULPIRIDE [Concomitant]
     Dates: start: 20061221
  30. SULPIRIDE [Concomitant]
     Dates: start: 20110224
  31. IMIDAPRIL HYDROCHLORIDE [Concomitant]
     Dates: start: 20090806
  32. CARBAMAZEPINE [Concomitant]
     Dates: start: 20110224

REACTIONS (2)
  - DEMENTIA [None]
  - RHEUMATOID ARTHRITIS [None]
